FAERS Safety Report 5636260-9 (Version None)
Quarter: 2008Q1

REPORT INFORMATION
  Report Type: 
  Country: None (occurrence: None)
  Receive Date: 20080220
  Receipt Date: 20080208
  Transmission Date: 20080703
  Serious: Yes (Life-Threatening)
  Sender: FDA-Public Use
  Company Number: GXKR2008GB01515

PATIENT
  Age: 76 Year
  Sex: Male
  Weight: 84.5 kg

DRUGS (17)
  1. ASPIRIN [Suspect]
     Indication: ANGINA PECTORIS
     Dosage: 75 MG, QD, ORAL
     Route: 048
  2. CLOPIDOGREL [Suspect]
     Indication: ANGINA PECTORIS
     Dosage: 75,  ORAL
     Route: 048
     Dates: end: 20071118
  3. EXENATIDE (EXENATIDE) [Suspect]
     Dosage: 5 UG, SUBCUTANEOUS
     Route: 058
     Dates: start: 20071029, end: 20071126
  4. ATORVASTATIN CALCIUM [Concomitant]
  5. BISOPROLOL FUMARATE [Concomitant]
  6. CLEXANE (ENOXAPARIN SODIUM, HEPARIN-FARCTION, SODIUM SALT) [Concomitant]
  7. FERROUS SULPHAE (FERROUS SULFATE) [Concomitant]
  8. FUROSEMIDE [Concomitant]
  9. GLICLAZIDE (GLICLAZIDE) [Concomitant]
  10. INSULIN [Concomitant]
  11. ISOSORBIDE MONONITRAE (ISOSORBIDE MONONITRATE) [Concomitant]
  12. LACTULOSE [Concomitant]
  13. LYRICA [Concomitant]
  14. SENNA (SENNA, SENNA ALEXANDRINA) [Concomitant]
  15. TRAMADOL HCL [Concomitant]
  16. NICORANDIL (NICORANDIL) [Concomitant]
  17. RAMIPRIL [Concomitant]

REACTIONS (7)
  - ACUTE CORONARY SYNDROME [None]
  - ACUTE MYOCARDIAL INFARCTION [None]
  - AORTIC STENOSIS [None]
  - CHEST PAIN [None]
  - EPISTAXIS [None]
  - HAEMOGLOBIN DECREASED [None]
  - IRON DEFICIENCY [None]
